FAERS Safety Report 24046710 (Version 1)
Quarter: 2024Q3

REPORT INFORMATION
  Report Type: Spontaneous
  Country: RO (occurrence: RO)
  Receive Date: 20240703
  Receipt Date: 20240703
  Transmission Date: 20241016
  Serious: Yes (Other)
  Sender: VERTEX
  Company Number: RO-VERTEX PHARMACEUTICALS-2024-010156

PATIENT
  Age: 12 Year
  Sex: Male
  Weight: 40 kg

DRUGS (4)
  1. ELEXACAFTOR\IVACAFTOR\TEZACAFTOR [Suspect]
     Active Substance: ELEXACAFTOR\IVACAFTOR\TEZACAFTOR
     Indication: Cystic fibrosis
     Dosage: 75 MG IVACAFTOR/ 50 MG TEZACAFTOR/ 100 MG ELEXACAFTOR, 2 TABS PER DAY
     Route: 048
     Dates: start: 20230206, end: 20240606
  2. KALYDECO [Suspect]
     Active Substance: IVACAFTOR
     Indication: Cystic fibrosis
     Dosage: 1 TAB PER DAY
     Route: 048
     Dates: start: 20240206, end: 20240606
  3. PANCRELIPASE [Concomitant]
     Active Substance: PANCRELIPASE
     Indication: Cystic fibrosis
     Dosage: 8 CAPSULE/ DAY
  4. PULMOZYME [Concomitant]
     Active Substance: DORNASE ALFA
     Indication: Cystic fibrosis
     Dosage: 2 500 U/2,5 ML  (1 AMPULE/DAY)

REACTIONS (3)
  - Hepatic cytolysis [Recovering/Resolving]
  - Blood bilirubin increased [Unknown]
  - Transaminases increased [Unknown]

NARRATIVE: CASE EVENT DATE: 20240605
